FAERS Safety Report 8523172 (Version 3)
Quarter: 2012Q4

REPORT INFORMATION
  Report Type: 
  Country: US (occurrence: US)
  Receive Date: 20120420
  Receipt Date: 20120910
  Transmission Date: 20130627
  Serious: Yes (Other)
  Sender: FDA-Public Use
  Company Number: US-SP-2012-04056

PATIENT
  Sex: Female

DRUGS (2)
  1. ADACEL TDAP [Suspect]
     Indication: IMMUNISATION
     Route: 030
     Dates: start: 20120414, end: 20120414
  2. TUBERSOL [Suspect]
     Indication: IMMUNISATION
     Route: 058
     Dates: start: 20120414, end: 20120414

REACTIONS (4)
  - Vaccination site cellulitis [Recovered/Resolved]
  - Nodule [Recovered/Resolved]
  - Tenderness [Recovered/Resolved]
  - Vaccination site inflammation [Recovered/Resolved]
